FAERS Safety Report 17697849 (Version 3)
Quarter: 2022Q1

REPORT INFORMATION
  Report Type: Spontaneous
  Country: NL (occurrence: NL)
  Receive Date: 20200423
  Receipt Date: 20220105
  Transmission Date: 20220424
  Serious: Yes (Other)
  Sender: FDA-Public Use
  Company Number: None

PATIENT
  Age: 11 Year
  Sex: Male

DRUGS (9)
  1. EVEROLIMUS [Interacting]
     Active Substance: EVEROLIMUS
     Indication: Pyelonephritis
     Dosage: UNK
     Route: 065
  2. EVEROLIMUS [Interacting]
     Active Substance: EVEROLIMUS
     Indication: Immunosuppressant drug therapy
     Dosage: STARTED ON DAY -24
     Route: 065
  3. EVEROLIMUS [Interacting]
     Active Substance: EVEROLIMUS
     Dosage: DOSE INCREASED ON DAY 7
     Route: 065
  4. TACROLIMUS [Interacting]
     Active Substance: TACROLIMUS
     Indication: Pyelonephritis
     Dosage: UNK
     Route: 065
  5. TACROLIMUS [Interacting]
     Active Substance: TACROLIMUS
     Indication: Immunosuppressant drug therapy
     Dosage: DOSE INCREASED ON DAY 7
     Route: 065
  6. TACROLIMUS [Interacting]
     Active Substance: TACROLIMUS
     Dosage: STARTED ON DAY 7
     Route: 065
  7. FLUCLOXACILLIN [Interacting]
     Active Substance: FLUCLOXACILLIN
     Indication: Pyelonephritis
     Dosage: UNK
     Route: 065
  8. FLUCLOXACILLIN [Interacting]
     Active Substance: FLUCLOXACILLIN
     Indication: Bacterial pyelonephritis
     Dosage: 2 GRAM, QD
     Route: 048
  9. PREDNISOLONE [Concomitant]
     Active Substance: PREDNISOLONE
     Indication: Immunosuppressant drug therapy
     Dosage: UNK
     Route: 065

REACTIONS (2)
  - Immunosuppressant drug level decreased [Recovered/Resolved]
  - Drug interaction [Recovered/Resolved]
